FAERS Safety Report 7233582-5 (Version None)
Quarter: 2011Q1

REPORT INFORMATION
  Report Type: 
  Country: None (occurrence: None)
  Receive Date: 20110119
  Receipt Date: 20100701
  Transmission Date: 20110831
  Serious: No
  Sender: FDA-Public Use
  Company Number: US-PFIZER INC-2010082529

PATIENT
  Sex: Female

DRUGS (2)
  1. IBANDRONATE SODIUM [Suspect]
     Dosage: UNK
  2. AROMASIN [Suspect]
     Dosage: UNK

REACTIONS (1)
  - ABDOMINAL DISTENSION [None]
